FAERS Safety Report 7422759-1 (Version None)
Quarter: 2011Q2

REPORT INFORMATION
  Report Type: 
  Country: None (occurrence: None)
  Receive Date: 20110419
  Receipt Date: 20110411
  Transmission Date: 20111010
  Serious: Yes (Death)
  Sender: FDA-Public Use
  Company Number: IE-AMGEN-IRLSP2011018966

PATIENT
  Age: 79 Year
  Sex: Male

DRUGS (6)
  1. CLARITHROMYCIN [Concomitant]
  2. GALFER [Concomitant]
  3. ALLOPURINOL [Concomitant]
  4. LASIX [Concomitant]
  5. ARANESP [Suspect]
     Indication: RENAL FAILURE CHRONIC
     Dosage: 40 A?G, 2 TIMES/WK
     Route: 058
  6. CRESTOR [Concomitant]

REACTIONS (1)
  - DEATH [None]
